FAERS Safety Report 5182553-1 (Version None)
Quarter: 2006Q4

REPORT INFORMATION
  Report Type: 
  Country: None (occurrence: None)
  Receive Date: 20061220
  Receipt Date: 20061024
  Transmission Date: 20070319
  Serious: No
  Sender: FDA-Public Use
  Company Number: US-GLAXOSMITHKLINE-A0624716A

PATIENT
  Age: 37 Year
  Sex: Female

DRUGS (2)
  1. COMMIT [Suspect]
     Dosage: 4MG UNKNOWN
     Route: 048
     Dates: start: 20061020, end: 20061021
  2. NICODERM [Suspect]
     Dosage: 1PAT PER DAY
     Route: 062
     Dates: start: 20000101, end: 20000101

REACTIONS (4)
  - DYSPEPSIA [None]
  - FEELING JITTERY [None]
  - HEART RATE INCREASED [None]
  - HICCUPS [None]
